FAERS Safety Report 7421663-2 (Version None)
Quarter: 2011Q2

REPORT INFORMATION
  Report Type: 
  Country: None (occurrence: None)
  Receive Date: 20110418
  Receipt Date: 20110406
  Transmission Date: 20111010
  Serious: Yes (Other)
  Sender: FDA-Public Use
  Company Number: GB-JNJFOC-20110403406

PATIENT
  Age: 25 Year
  Sex: Female

DRUGS (3)
  1. ALLI [Concomitant]
     Indication: WEIGHT DECREASED
  2. NICOTINE [Suspect]
     Indication: SMOKING CESSATION THERAPY
     Route: 065
  3. NICOTINE [Suspect]
     Route: 065

REACTIONS (5)
  - MUSCULOSKELETAL DISCOMFORT [None]
  - DYSPNOEA [None]
  - NAUSEA [None]
  - PAIN [None]
  - PALPITATIONS [None]
